FAERS Safety Report 4574951-1 (Version None)
Quarter: 2005Q1

REPORT INFORMATION
  Report Type: 
  Country: None (occurrence: None)
  Receive Date: 20050208
  Receipt Date: 20050128
  Transmission Date: 20050727
  Serious: Yes (Other)
  Sender: FDA-Public Use
  Company Number: FR-JNJFOC-20041002525

PATIENT
  Sex: Female
  Weight: 80 kg

DRUGS (1)
  1. CONCERTA [Suspect]
     Indication: ATTENTION DEFICIT/HYPERACTIVITY DISORDER
     Route: 049
     Dates: start: 20040601, end: 20041001

REACTIONS (2)
  - SUBCLAVIAN VEIN THROMBOSIS [None]
  - THROMBOSIS [None]
